FAERS Safety Report 7041296-X (Version None)
Quarter: 2010Q3

REPORT INFORMATION
  Report Type: 
  Country: None (occurrence: None)
  Receive Date: 20100929
  Receipt Date: 20100827
  Transmission Date: 20110219
  Serious: No
  Sender: FDA-Public Use
  Company Number: US-WYE-H17269510

PATIENT
  Age: 63 Year
  Sex: Female
  Weight: 46.31 kg

DRUGS (6)
  1. PRISTIQ [Suspect]
     Indication: DEPRESSION
     Dosage: 50 MG 1X PER 1 DAY
     Dates: start: 20100823
  2. STRATTERA [Concomitant]
  3. HYDROCODONE BITARTRATE [Concomitant]
  4. OMEPRAZOLE [Concomitant]
  5. SIMVASTATIN [Concomitant]
  6. ZOLPIDEM (ZOLPIDEM0 [Concomitant]

REACTIONS (3)
  - DECREASED APPETITE [None]
  - LETHARGY [None]
  - NAUSEA [None]
